FAERS Safety Report 16810313 (Version 2)
Quarter: 2020Q2

REPORT INFORMATION
  Report Type: Spontaneous
  Country: US (occurrence: US)
  Receive Date: 20190916
  Receipt Date: 20200615
  Transmission Date: 20200713
  Serious: No
  Sender: FDA-Public Use
  Company Number: US-PFIZER INC-2019394593

PATIENT
  Age: 62 Year
  Sex: Female

DRUGS (1)
  1. ADVIL [Suspect]
     Active Substance: IBUPROFEN
     Dosage: UNK
     Dates: start: 20190829

REACTIONS (2)
  - Multi-organ disorder [Unknown]
  - Nausea [Unknown]

NARRATIVE: CASE EVENT DATE: 20190829
